FAERS Safety Report 19745810 (Version 1)
Quarter: 2021Q3

REPORT INFORMATION
  Report Type: Spontaneous
  Country: US (occurrence: US)
  Receive Date: 20210825
  Receipt Date: 20210825
  Transmission Date: 20211014
  Serious: Yes (Other)
  Sender: FDA-Public Use
  Company Number: US-GW PHARMA-202108USGW04062

PATIENT

DRUGS (1)
  1. EPIDIOLEX [Suspect]
     Active Substance: CANNABIDIOL
     Indication: LENNOX-GASTAUT SYNDROME
     Dosage: 325 MILLIGRAM
     Route: 048
     Dates: start: 20210304

REACTIONS (1)
  - Urine output decreased [Unknown]

NARRATIVE: CASE EVENT DATE: 2021
